FAERS Safety Report 9530153 (Version 1)
Quarter: 2013Q3

REPORT INFORMATION
  Report Type: Spontaneous
  Country: US (occurrence: US)
  Receive Date: 20130917
  Receipt Date: 20130917
  Transmission Date: 20140515
  Serious: No
  Sender: FDA-Public Use
  Company Number: US-009507513-1309USA005830

PATIENT
  Sex: 0
  Weight: 54.42 kg

DRUGS (2)
  1. IMPLANON [Suspect]
     Dosage: UNK
     Route: 059
     Dates: start: 20130912, end: 20130912
  2. NEXPLANON [Concomitant]
     Dosage: UNK
     Route: 059
     Dates: start: 20130912

REACTIONS (3)
  - Device difficult to use [Recovered/Resolved]
  - Needle issue [Unknown]
  - No adverse event [Unknown]
